FAERS Safety Report 4308043-3 (Version None)
Quarter: 2004Q1

REPORT INFORMATION
  Report Type: 
  Country: None (occurrence: None)
  Receive Date: 20040301
  Receipt Date: 20030409
  Transmission Date: 20041129
  Serious: No
  Sender: FDA-Public Use
  Company Number: US-BRISTOL-MYERS SQUIBB COMPANY-12235164

PATIENT
  Age: 74 Year
  Sex: Male
  Weight: 84 kg

DRUGS (11)
  1. GLUCOPHAGE [Suspect]
     Indication: DIABETES MELLITUS
     Dosage: DOSE: 1000MG IN AM, 500MG IN PM; DURATION = ^SEVERAL YEARS^
     Route: 048
  2. ZOCOR [Concomitant]
  3. ZESTRIL [Concomitant]
  4. SYNTHROID [Concomitant]
  5. ASPIRIN [Concomitant]
  6. CARDURA [Concomitant]
  7. RELAFEN [Concomitant]
  8. NEURONTIN [Concomitant]
  9. MULTI-VITAMINS [Concomitant]
  10. VITAMIN B COMPLEX CAP [Concomitant]
  11. CALCIUM [Concomitant]

REACTIONS (1)
  - HYPOGLYCAEMIA [None]
